FAERS Safety Report 9263094 (Version 1)
Quarter: 2013Q2

REPORT INFORMATION
  Report Type: Spontaneous
  Country: AT (occurrence: None)
  Receive Date: 20130425
  Receipt Date: 20130425
  Transmission Date: 20140414
  Serious: Yes (Other)
  Sender: FDA-Public Use
  Company Number: AT-20130003

PATIENT
  Sex: Female

DRUGS (1)
  1. DOTAREM [Suspect]
     Indication: PRODUCT USED FOR UNKNOWN INDICATION
     Dosage: 10 ML (10 ML, 1 IN 1 TOTAL)
     Route: 042
     Dates: start: 20130318, end: 20130318

REACTIONS (4)
  - Respiratory distress [None]
  - Chills [None]
  - Nausea [None]
  - Vomiting [None]
